FAERS Safety Report 9373843 (Version 2)
Quarter: 2013Q4

REPORT INFORMATION
  Report Type: Spontaneous
  Country: DK (occurrence: DK)
  Receive Date: 20130628
  Receipt Date: 20131022
  Transmission Date: 20140711
  Serious: Yes (Life-Threatening, Hospitalization)
  Sender: FDA-Public Use
  Company Number: PHHY2013DK065588

PATIENT
  Age: 40 Year
  Sex: Female

DRUGS (2)
  1. QUETIAPINE [Suspect]
     Dosage: 50 TABLETS OF QUETIAPIN 400 MG TABLETS ORALLY (20 GRAMS)
     Route: 048
  2. FOXGLOVE LEAVES [Suspect]

REACTIONS (12)
  - Cardiac arrest [Unknown]
  - Torsade de pointes [Unknown]
  - Ventricular fibrillation [Unknown]
  - Atrioventricular block [Unknown]
  - Ventricular tachycardia [Unknown]
  - Bradycardia [Unknown]
  - Arrhythmia [Unknown]
  - Toxicity to various agents [Unknown]
  - Sinus tachycardia [Unknown]
  - Coma scale abnormal [Unknown]
  - Suicide attempt [Unknown]
  - Intentional overdose [Unknown]
